FAERS Safety Report 9173313 (Version 1)
Quarter: 2013Q1

REPORT INFORMATION
  Report Type: Spontaneous
  Country: CN (occurrence: CN)
  Receive Date: 20130320
  Receipt Date: 20130320
  Transmission Date: 20140127
  Serious: Yes (Other)
  Sender: FDA-Public Use
  Company Number: CN-JNJFOC-20130305655

PATIENT
  Sex: 0

DRUGS (6)
  1. REMICADE [Suspect]
     Indication: PSORIATIC ARTHROPATHY
     Dosage: 3-5 MG/KG
     Route: 042
  2. REMICADE [Suspect]
     Indication: PSORIATIC ARTHROPATHY
     Route: 042
  3. REMICADE [Suspect]
     Indication: SPONDYLOARTHROPATHY
     Dosage: 3-5 MG/KG
     Route: 042
  4. REMICADE [Suspect]
     Indication: SPONDYLOARTHROPATHY
     Route: 042
  5. REMICADE [Suspect]
     Indication: RHEUMATOID ARTHRITIS
     Route: 042
  6. REMICADE [Suspect]
     Indication: RHEUMATOID ARTHRITIS
     Dosage: 3-5 MG/KG
     Route: 042

REACTIONS (4)
  - Tuberculosis [Unknown]
  - Drug ineffective [Unknown]
  - Injection site reaction [Unknown]
  - Dermatitis allergic [Unknown]
